FAERS Safety Report 7465117-6 (Version None)
Quarter: 2011Q2

REPORT INFORMATION
  Report Type: 
  Country: None (occurrence: None)
  Receive Date: 20110428
  Receipt Date: 20110413
  Transmission Date: 20111010
  Serious: Yes (Hospitalization)
  Sender: FDA-Public Use
  Company Number: TCI2011A02359

PATIENT
  Age: 70 Year
  Sex: Male

DRUGS (6)
  1. GLIMICRON (GLICLAZIDE) [Concomitant]
  2. MUCOSTA (REBAMIPIDE) [Concomitant]
  3. CO-DIO (HYDROCHLOROTHIAZIDE, VALSARTAN) [Concomitant]
  4. ACTOS [Suspect]
     Indication: DIABETES MELLITUS
     Dosage: 15 MG (15 MG, 1 IN 1 D) PER ORAL
     Route: 048
     Dates: start: 20100723, end: 20110307
  5. BASEN OD TABLETS 0.2 (VIGLIBOSE) [Concomitant]
  6. 25MG ALINAMIN-F SUGAR-COATED TABLETS (FURSULTIAMINE) [Concomitant]

REACTIONS (15)
  - HYPONATRAEMIA [None]
  - PLEURAL EFFUSION [None]
  - HEART RATE INCREASED [None]
  - ASTHMA [None]
  - CONDITION AGGRAVATED [None]
  - CARDIAC FAILURE [None]
  - OROPHARYNGEAL PAIN [None]
  - ARTHRALGIA [None]
  - PYELONEPHRITIS [None]
  - VENTRICULAR EXTRASYSTOLES [None]
  - ANIMAL BITE [None]
  - PERICARDIAL EFFUSION [None]
  - AORTIC VALVE CALCIFICATION [None]
  - MITRAL VALVE INCOMPETENCE [None]
  - TRICUSPID VALVE INCOMPETENCE [None]
